FAERS Safety Report 5211342-4 (Version None)
Quarter: 2007Q1

REPORT INFORMATION
  Report Type: 
  Country: None (occurrence: None)
  Receive Date: 20070111
  Receipt Date: 20070103
  Transmission Date: 20070707
  Serious: Yes (Hospitalization)
  Sender: FDA-Public Use
  Company Number: 234559

PATIENT
  Age: 61 Year
  Sex: Female

DRUGS (4)
  1. BEVACIZUMAB(BEVACIZUMAB) PWDR + SOLVENT,INFUSION SOLN, 100MG [Suspect]
     Indication: BREAST CANCER
     Dosage: 558 MG
     Dates: start: 20061017, end: 20061031
  2. ADRIAMYCIN PFS [Suspect]
     Indication: BREAST CANCER
     Dosage: 94 MG
     Dates: start: 20061017, end: 20061031
  3. CYTOXAN [Suspect]
     Indication: BREAST CANCER
     Dosage: 942 MG
     Dates: start: 20061017, end: 20061031
  4. NEULASTA [Concomitant]

REACTIONS (2)
  - LIVER FUNCTION TEST ABNORMAL [None]
  - PYREXIA [None]
